FAERS Safety Report 25388963 (Version 1)
Quarter: 2025Q2

REPORT INFORMATION
  Report Type: Spontaneous
  Country: VN (occurrence: VN)
  Receive Date: 20250603
  Receipt Date: 20250603
  Transmission Date: 20250716
  Serious: Yes (Other)
  Sender: SANDOZ
  Company Number: VN-002147023-NVSC2023VN241388

PATIENT
  Age: 51 Year
  Sex: Female

DRUGS (2)
  1. FULVESTRANT [Suspect]
     Active Substance: FULVESTRANT
     Indication: Breast cancer metastatic
     Route: 030
  2. RIBOCICLIB [Suspect]
     Active Substance: RIBOCICLIB
     Indication: Breast cancer metastatic
     Dosage: 600 MG, QD (DAY 1 TO DAY 21 IN 28-DAY CYCLE)
     Route: 048

REACTIONS (17)
  - Carcinoembryonic antigen increased [Unknown]
  - Neutropenia [Unknown]
  - Carbohydrate antigen 15-3 [Unknown]
  - Blood glucose abnormal [Unknown]
  - Blood urea abnormal [Unknown]
  - Red blood cell abnormality [Unknown]
  - Neutrophil count abnormal [Unknown]
  - Lymphocyte count abnormal [Unknown]
  - Eosinophil count abnormal [Unknown]
  - Gamma-glutamyltransferase abnormal [Unknown]
  - Monocyte count abnormal [Unknown]
  - Haemoglobin abnormal [Unknown]
  - Mean cell volume abnormal [Unknown]
  - Mean cell haemoglobin [Unknown]
  - Red cell distribution width abnormal [Unknown]
  - Platelet count abnormal [Unknown]
  - Mean platelet volume abnormal [Unknown]
